FAERS Safety Report 15100824 (Version 2)
Quarter: 2018Q3

REPORT INFORMATION
  Report Type: Spontaneous
  Country: AU (occurrence: AU)
  Receive Date: 20180703
  Receipt Date: 20180705
  Transmission Date: 20181010
  Serious: Yes (Hospitalization)
  Sender: FDA-Public Use
  Company Number: AU-ABBVIE-18K-008-2407555-00

PATIENT
  Sex: Female

DRUGS (4)
  1. METHOTREXATE. [Concomitant]
     Active Substance: METHOTREXATE
     Indication: PRODUCT USED FOR UNKNOWN INDICATION
  2. MELOXICAM. [Concomitant]
     Active Substance: MELOXICAM
     Indication: PRODUCT USED FOR UNKNOWN INDICATION
  3. HUMIRA [Suspect]
     Active Substance: ADALIMUMAB
     Indication: ANKYLOSING SPONDYLITIS
     Route: 058
     Dates: start: 201806
  4. HUMIRA [Suspect]
     Active Substance: ADALIMUMAB
     Indication: UVEITIS

REACTIONS (12)
  - Tension headache [Not Recovered/Not Resolved]
  - Anxiety [Unknown]
  - Heart rate increased [Unknown]
  - Vomiting [Unknown]
  - Feeling hot [Unknown]
  - Nausea [Not Recovered/Not Resolved]
  - Viral infection [Unknown]
  - Erythema [Unknown]
  - Decreased appetite [Unknown]
  - Diarrhoea [Unknown]
  - Flushing [Unknown]
  - Pyrexia [Unknown]

NARRATIVE: CASE EVENT DATE: 2018
